FAERS Safety Report 6625672-2 (Version None)
Quarter: 2010Q1

REPORT INFORMATION
  Report Type: 
  Country: None (occurrence: None)
  Receive Date: 20100310
  Receipt Date: 20100304
  Transmission Date: 20100710
  Serious: Yes (Death)
  Sender: FDA-Public Use
  Company Number: US-ELI_LILLY_AND_COMPANY-US201003002151

PATIENT
  Sex: Female

DRUGS (2)
  1. GEMCITABINE HCL [Suspect]
     Indication: NEOPLASM MALIGNANT
     Dosage: 800 MG/M2, DAYS 1 AND 8 EVERY 21 DAYS
  2. PLACEBO [Concomitant]
     Indication: NEOPLASM MALIGNANT

REACTIONS (1)
  - INFECTION [None]
